FAERS Safety Report 16457666 (Version 2)
Quarter: 2019Q2

REPORT INFORMATION
  Report Type: Spontaneous
  Country: US (occurrence: US)
  Receive Date: 20190620
  Receipt Date: 20190620
  Transmission Date: 20190711
  Serious: No
  Sender: FDA-Public Use
  Company Number: US-PFIZER INC-2016494931

PATIENT
  Age: 54 Year
  Sex: Male
  Weight: 95.24 kg

DRUGS (20)
  1. VITAMIN B2 [RIBOFLAVIN] [Concomitant]
     Dosage: 400 MG, DAILY (TAKE 4 TABLETS {400 MG TOTAL} BY MOUTH DAILY)
     Route: 048
  2. IMITREX [Concomitant]
     Active Substance: SUMATRIPTAN SUCCINATE
     Indication: MIGRAINE
     Dosage: 50 MG, AS NEEDED TAKE ONE TABLET BY MOUTH NEEDED FOR MIGRAINE, MAY REPEAT IN 2 HOURS IF NEEDED)
     Route: 048
  3. NEXIUM [Concomitant]
     Active Substance: ESOMEPRAZOLE MAGNESIUM
     Dosage: 20 MG, DAILY (TAKE 1 CAPSULE (20 MG TOTAL) BY MOUTH DAILY BEFORE MEAL)
     Route: 048
  4. MAGNESIUM OXIDE. [Concomitant]
     Active Substance: MAGNESIUM OXIDE
     Dosage: 250 MG, 2X/DAY (TAKE 1 TABLET (250 MG TOTAL) BY MOUTH 2 (TWO) TIMES DAILY. )
     Route: 048
  5. VIAGRA [Suspect]
     Active Substance: SILDENAFIL CITRATE
     Indication: DISTURBANCE IN SEXUAL AROUSAL
     Dosage: 100 MG, AS NEEDED (TAKE ONE PILL ONE HOUR PRIOR TO SEXUAL ACTIVITY)
     Route: 048
     Dates: start: 20160929
  6. FLONASE [Concomitant]
     Active Substance: FLUTICASONE PROPIONATE
     Dosage: 100 UG, 2X/DAY (2 SPRAYS BY EACH NARE ROUTE 2 (TWO) TIMES DAILY)
     Route: 045
  7. ATARAX [Concomitant]
     Active Substance: HYDROXYZINE HYDROCHLORIDE
     Indication: PRURITUS
     Dosage: 25 MG, AS NEEDED (TAKE 1 TABLET (25 MG TOTAL) BY MOUTH 2 (TWO) TIMES DAILY AS NEEDED)
     Route: 048
  8. ADVIL [IBUPROFEN] [Concomitant]
     Active Substance: IBUPROFEN
     Indication: PAIN
     Dosage: 600 MG, AS NEEDED ((TAKE 1 TABLET (600 MG TOTAL) BY MOUTH EVERY 6 (SIX) HOURS AS NEEDED FOR PAIN))
     Route: 048
  9. NEURONTIN [Concomitant]
     Active Substance: GABAPENTIN
     Dosage: 100 MG, 3X/DAY (TAKE 1 CAP PO (ORAL) TID(THREE TIMES A DAY) .)
     Route: 048
  10. FLEXERIL [Concomitant]
     Active Substance: CYCLOBENZAPRINE HYDROCHLORIDE
     Indication: MUSCLE SPASMS
     Dosage: 30 MG, AS NEEDED  (TAKE 10 MG BY MOUTH 3 (THREE) TIMES DAILY AS NEEDED )
     Route: 048
  11. MOTRIN [Concomitant]
     Active Substance: IBUPROFEN
     Indication: PAIN
     Dosage: 600 MG, AS NEEDED (TAKE 1 TABLET (600 MG TOTAL) BY MOUTH EVERY 6 (SIX) HOURS AS NEEDED)
     Route: 048
  12. FLOMAX [Concomitant]
     Active Substance: TAMSULOSIN HYDROCHLORIDE
     Dosage: 0.4 MG, DAILY (TAKE 1 CAPSULE (0.4 MG TOTAL} BY MOUTH DAILY)
     Route: 048
  13. KLONOPIN [Concomitant]
     Active Substance: CLONAZEPAM
     Dosage: 0.5 MG, 1X/DAY (TAKE 1 TABLET (0.5 MG TABLET) BY MOUTH NIGHTLY)
     Route: 048
  14. ALBUTEROL HFA [Concomitant]
     Active Substance: ALBUTEROL SULFATE
     Indication: WHEEZING
     Dosage: 180 UG, AS NEEDED (INHALE 2 PUFFS INTO THE LUNGS EVERY 6 (SIX) HOURS AS NEEDED)
     Route: 055
  15. LOTRIMIN [Concomitant]
     Active Substance: CLOTRIMAZOLE
     Dosage: UNK UNK, 2X/DAY (APPLY TOPICALLY 2 (TWO) TIMES DAILY FOR 14 DAYS)
     Route: 061
  16. NEURONTIN [Concomitant]
     Active Substance: GABAPENTIN
     Dosage: 100 MG, UNK (TAKE 1 CAP PO (ORAL) Q DAY FOR 5 DAYS )
     Route: 048
  17. CYMBALTA [Concomitant]
     Active Substance: DULOXETINE HYDROCHLORIDE
     Dosage: 60 MG, 2X/DAY
     Route: 048
  18. ALEVE [Concomitant]
     Active Substance: NAPROXEN SODIUM
     Dosage: 220 MG, 2X/DAY  (TAKE 1 TABLET (220 MG TOTAL) BY MOUTH EVERY 12 (TWELVE) HOURS)
     Route: 048
  19. NEURONTIN [Concomitant]
     Active Substance: GABAPENTIN
     Dosage: 100 MG, 2X/DAY (TAKE 1 CAP PO (ORAL) BID (TWO TIMES A DAY))
     Route: 048
  20. HYDROCORTISONE. [Concomitant]
     Active Substance: HYDROCORTISONE
     Dosage: UNK UNK, DAILY (APPLY TOPICALLY DAILY)
     Route: 061

REACTIONS (2)
  - Drug ineffective [Not Recovered/Not Resolved]
  - Suspected product tampering [Unknown]
